FAERS Safety Report 6567439-X (Version None)
Quarter: 2010Q1

REPORT INFORMATION
  Report Type: 
  Country: None (occurrence: None)
  Receive Date: 20100128
  Receipt Date: 20100113
  Transmission Date: 20100710
  Serious: Yes (Death, Hospitalization)
  Sender: FDA-Public Use
  Company Number: 2009AC000078

PATIENT
  Age: 60 Year
  Sex: Male

DRUGS (15)
  1. DIGOXIN [Suspect]
     Dosage: 0.125 MG;QD;PO
     Route: 048
     Dates: start: 20071001, end: 20080101
  2. ASPIRIN [Concomitant]
  3. COREG [Concomitant]
  4. LASIX [Concomitant]
  5. CAPTOPRIL [Concomitant]
  6. AMOXICILLIN [Concomitant]
  7. TORSEMIDE [Concomitant]
  8. CARVEDILOL [Concomitant]
  9. HYDROCODONE [Concomitant]
  10. CEPHALEXIN [Concomitant]
  11. ROZEREM [Concomitant]
  12. VIAGRA [Concomitant]
  13. CIALIS [Concomitant]
  14. AZITHROMYCIN [Concomitant]
  15. NAPROXEN [Concomitant]

REACTIONS (6)
  - AORTIC VALVE INCOMPETENCE [None]
  - CONGESTIVE CARDIOMYOPATHY [None]
  - ECONOMIC PROBLEM [None]
  - MULTIPLE INJURIES [None]
  - SUDDEN DEATH [None]
  - SURGERY [None]
